FAERS Safety Report 13503346 (Version 1)
Quarter: 2017Q2

REPORT INFORMATION
  Report Type: Spontaneous
  Country: US (occurrence: US)
  Receive Date: 20170502
  Receipt Date: 20170502
  Transmission Date: 20170830
  Serious: Yes (Other)
  Sender: FDA-Public Use
  Company Number: None

PATIENT
  Age: 69 Year
  Sex: Female
  Weight: 52.21 kg

DRUGS (12)
  1. CENTRUM VITAMIN [Concomitant]
  2. PROBIOTICS [Concomitant]
     Active Substance: PROBIOTICS NOS
  3. PROLIA [Suspect]
     Active Substance: DENOSUMAB
     Indication: OSTEOPOROSIS
     Dosage: 1 INJECTION 1X EVERY 6 MTS
     Dates: start: 20170429, end: 20170429
  4. FOLIC ACID. [Concomitant]
     Active Substance: FOLIC ACID
  5. PREDNISONE. [Concomitant]
     Active Substance: PREDNISONE
  6. MICRO PURIN NASAL OINTMENT [Concomitant]
  7. NORCO [Concomitant]
     Active Substance: ACETAMINOPHEN\HYDROCODONE BITARTRATE
  8. FLUTICASONE. [Concomitant]
     Active Substance: FLUTICASONE
  9. VOLTERAN EYE DROPS [Concomitant]
  10. VITAMIN D3 [Concomitant]
     Active Substance: CHOLECALCIFEROL
  11. METHOTREXATE. [Concomitant]
     Active Substance: METHOTREXATE
  12. EYTHRMYCIN [Concomitant]

REACTIONS (3)
  - Malaise [None]
  - Herpes zoster [None]
  - Rheumatoid arthritis [None]

NARRATIVE: CASE EVENT DATE: 20170430
